FAERS Safety Report 13006302 (Version 12)
Quarter: 2019Q2

REPORT INFORMATION
  Report Type: Report from Study
  Country: FR (occurrence: FR)
  Receive Date: 20161207
  Receipt Date: 20190423
  Transmission Date: 20190711
  Serious: Yes (Death, Hospitalization)
  Sender: FDA-Public Use
  Company Number: FR-VIFOR (INTERNATIONAL) INC.-VIT-2016-08218

PATIENT
  Sex: Male
  Weight: 76.5 kg

DRUGS (8)
  1. VELPHORO [Suspect]
     Active Substance: FERRIC OXYHYDROXIDE
     Indication: BLOOD PHOSPHORUS ABNORMAL
     Route: 048
     Dates: start: 20160929
  2. FER MYLAN [Concomitant]
  3. KARDEGIC [Concomitant]
     Active Substance: ASPIRIN DL-LYSINE
     Indication: CARDIOVASCULAR EVENT PROPHYLAXIS
     Dates: start: 20130427
  4. FOSRENOL [Concomitant]
     Active Substance: LANTHANUM CARBONATE
     Indication: HYPERPHOSPHATAEMIA
     Dates: start: 20150627, end: 20160929
  5. FER MYLAN [Concomitant]
     Indication: ANAEMIA
     Dates: start: 20150310
  6. VELPHORO [Suspect]
     Active Substance: FERRIC OXYHYDROXIDE
     Indication: CHRONIC KIDNEY DISEASE
  7. UVEDOSE [Concomitant]
     Active Substance: CHOLECALCIFEROL
     Indication: VITAMIN D DEFICIENCY
     Dosage: 1 AMPULE
     Dates: start: 20150901
  8. ARANESP [Concomitant]
     Active Substance: DARBEPOETIN ALFA
     Indication: ANAEMIA
     Dates: start: 20131210

REACTIONS (4)
  - Fall [Recovering/Resolving]
  - Pelvic fracture [Recovering/Resolving]
  - Large intestine perforation [Fatal]
  - Pneumoperitoneum [Fatal]

NARRATIVE: CASE EVENT DATE: 20161118
